FAERS Safety Report 8760081 (Version 1)
Quarter: 2012Q4

REPORT INFORMATION
  Report Type: Spontaneous
  Country: US (occurrence: None)
  Receive Date: 20120829
  Receipt Date: 20120829
  Transmission Date: 20130627
  Serious: Yes (Disabling)
  Sender: FDA-Public Use
  Company Number: None

PATIENT
  Age: 64 Year
  Sex: Female
  Weight: 65.77 kg

DRUGS (1)
  1. ESTRING [Suspect]
     Indication: MENOPAUSE
     Route: 067
     Dates: start: 20120807, end: 20120810

REACTIONS (4)
  - Pain [None]
  - Burning sensation [None]
  - Perineal ulceration [None]
  - Inflammation [None]
